FAERS Safety Report 4381229-8 (Version None)
Quarter: 2004Q2

REPORT INFORMATION
  Report Type: 
  Country: None (occurrence: None)
  Receive Date: 20040616
  Receipt Date: 20040609
  Transmission Date: 20050107
  Serious: Yes (Hospitalization)
  Sender: FDA-Public Use
  Company Number: TPA2004A00716

PATIENT

DRUGS (3)
  1. ACTOS [Suspect]
     Dosage: PER ORAL
     Route: 048
  2. AVANDAMET [Concomitant]
  3. METFORMIN HCL [Concomitant]

REACTIONS (1)
  - GASTROINTESTINAL MOTILITY DISORDER [None]
